FAERS Safety Report 5514355-8 (Version None)
Quarter: 2007Q4

REPORT INFORMATION
  Report Type: 
  Country: None (occurrence: None)
  Receive Date: 20071113
  Receipt Date: 20070420
  Transmission Date: 20080405
  Serious: No
  Sender: FDA-Public Use
  Company Number: A0648175A

PATIENT
  Age: 53 Year
  Sex: Male

DRUGS (20)
  1. COREG [Suspect]
     Indication: DRUG USE FOR UNKNOWN INDICATION
     Route: 048
     Dates: start: 20070201
  2. CRESTOR [Concomitant]
  3. PLAVIX [Concomitant]
  4. ZETIA [Concomitant]
  5. GLIMEPIRIDE [Concomitant]
  6. ALTACE [Concomitant]
  7. METFORMIN HCL [Concomitant]
  8. PREVACID [Concomitant]
  9. ISOSORBID MONONITRATE [Concomitant]
  10. TOPROL-XL [Concomitant]
  11. FIBER CON [Concomitant]
  12. LORATADINE [Concomitant]
  13. VITAMINE E [Concomitant]
  14. NIACIN [Concomitant]
  15. ASPIRIN [Concomitant]
  16. CALCIUM [Concomitant]
  17. ASCORBIC ACID [Concomitant]
  18. FISH OIL [Concomitant]
  19. FLAX SEED OIL [Concomitant]
  20. MULTI-VITAMIN [Concomitant]

REACTIONS (3)
  - NODULE ON EXTREMITY [None]
  - PRURITUS [None]
  - RASH [None]
